FAERS Safety Report 8852159 (Version 1)
Quarter: 2012Q4

REPORT INFORMATION
  Report Type: 
  Country: DE (occurrence: DE)
  Receive Date: 20121022
  Receipt Date: 20121022
  Transmission Date: 20130627
  Serious: Yes (Hospitalization)
  Sender: FDA-Public Use
  Company Number: DE-ELI_LILLY_AND_COMPANY-DE201210003281

PATIENT
  Sex: Female

DRUGS (10)
  1. FORSTEO [Suspect]
     Indication: OSTEOPOROSIS
     Dosage: UNK
     Route: 058
     Dates: start: 201110
  2. PREDNIHEXAL [Concomitant]
  3. AAS [Concomitant]
  4. METOSUCCINAT [Concomitant]
  5. RAMIPRIL PLUS [Concomitant]
  6. OSTEOPLUS                          /00944201/ [Concomitant]
  7. SIMVABETA [Concomitant]
  8. MORPHANTON [Concomitant]
  9. TORASEMID [Concomitant]
  10. PRASUGREL [Concomitant]

REACTIONS (2)
  - Aortic stenosis [Not Recovered/Not Resolved]
  - Injection site haematoma [Not Recovered/Not Resolved]
